FAERS Safety Report 15711318 (Version 5)
Quarter: 2019Q2

REPORT INFORMATION
  Report Type: Report from Study
  Country: US (occurrence: US)
  Receive Date: 20181211
  Receipt Date: 20190531
  Transmission Date: 20190711
  Serious: Yes (Hospitalization)
  Sender: FDA-Public Use
  Company Number: US-ACTELION-A-NJ2018-183506

PATIENT
  Age: 17 Year
  Sex: Female
  Weight: 57.6 kg

DRUGS (24)
  1. ZYRTEC [Concomitant]
     Active Substance: CETIRIZINE HYDROCHLORIDE
  2. INSULIN [Concomitant]
     Active Substance: INSULIN NOS
  3. LISINOPRIL. [Concomitant]
     Active Substance: LISINOPRIL
     Dosage: 5 MG, QD
  4. ONDANSETRON [Concomitant]
     Active Substance: ONDANSETRON
  5. ADCIRCA [Concomitant]
     Active Substance: TADALAFIL
     Dosage: 40 MG, QD
  6. FENOFIBRATE. [Concomitant]
     Active Substance: FENOFIBRATE
  7. METFORMIN [Concomitant]
     Active Substance: METFORMIN HYDROCHLORIDE
  8. UPTRAVI [Suspect]
     Active Substance: SELEXIPAG
     Indication: PULMONARY HYPERTENSION
     Dosage: 1000 MCG, BID
     Route: 048
  9. OPSUMIT [Suspect]
     Active Substance: MACITENTAN
     Indication: PULMONARY HYPERTENSION
     Dosage: 10 MG, QD
     Route: 048
  10. VITAMIN D [Concomitant]
     Active Substance: VITAMIN D NOS
  11. CALCIUM [Concomitant]
     Active Substance: CALCIUM
  12. MAGNESIUM OXIDE. [Concomitant]
     Active Substance: MAGNESIUM OXIDE
  13. PROVIGIL [Concomitant]
     Active Substance: MODAFINIL
  14. MIRALAX [Concomitant]
     Active Substance: POLYETHYLENE GLYCOL 3350
     Dosage: UNK, PRN
  15. AMLODIPINE [Concomitant]
     Active Substance: AMLODIPINE BESYLATE
  16. NEXPLANON [Concomitant]
     Active Substance: ETONOGESTREL
  17. AZATHIOPRINE. [Concomitant]
     Active Substance: AZATHIOPRINE
  18. ERYTHROMYCIN. [Concomitant]
     Active Substance: ERYTHROMYCIN
  19. NEXIUM [Concomitant]
     Active Substance: ESOMEPRAZOLE MAGNESIUM
  20. CELECOXIB. [Concomitant]
     Active Substance: CELECOXIB
     Dosage: UNK, PRN
  21. IRON [Concomitant]
     Active Substance: IRON
  22. GABAPENTIN. [Concomitant]
     Active Substance: GABAPENTIN
  23. ASMANEX [Concomitant]
     Active Substance: MOMETASONE FUROATE
  24. RIBOFLAVIN [Concomitant]
     Active Substance: RIBOFLAVIN

REACTIONS (18)
  - Pain [Unknown]
  - Blood triglycerides increased [Recovering/Resolving]
  - Narcolepsy [Unknown]
  - Nausea [Unknown]
  - Insomnia [Unknown]
  - Dysphagia [Unknown]
  - Haemoptysis [Recovered/Resolved]
  - Nodule [Unknown]
  - Dyspnoea exertional [Recovering/Resolving]
  - Complication associated with device [Unknown]
  - Arthralgia [Unknown]
  - Paraesthesia [Unknown]
  - Skin tightness [Recovering/Resolving]
  - Pancreatitis [Not Recovered/Not Resolved]
  - Nerve injury [Unknown]
  - Wrist surgery [Unknown]
  - Dyspepsia [Unknown]
  - Blood pressure decreased [Unknown]

NARRATIVE: CASE EVENT DATE: 20190402
